FAERS Safety Report 6672813-7 (Version None)
Quarter: 2010Q2

REPORT INFORMATION
  Report Type: 
  Country: None (occurrence: None)
  Receive Date: 20100408
  Receipt Date: 20100405
  Transmission Date: 20101027
  Serious: Yes (Life-Threatening, Hospitalization, Other)
  Sender: FDA-Public Use
  Company Number: ES-ASTRAZENECA-2010SE14765

PATIENT
  Age: 76 Year
  Sex: Female

DRUGS (2)
  1. NEXIUM [Suspect]
     Indication: GASTRITIS PROPHYLAXIS
     Route: 048
     Dates: end: 20090624
  2. ALDOCUMAR [Interacting]
     Indication: ATRIAL FIBRILLATION
     Route: 048
     Dates: start: 20090429, end: 20090624

REACTIONS (2)
  - DRUG INTERACTION [None]
  - EXTRADURAL HAEMATOMA [None]
